FAERS Safety Report 5297998-9 (Version None)
Quarter: 2007Q1

REPORT INFORMATION
  Report Type: 
  Country: None (occurrence: None)
  Receive Date: 20070201
  Receipt Date: 20061030
  Transmission Date: 20070707
  Serious: No
  Sender: FDA-Public Use
  Company Number: 2006PV024241

PATIENT
  Age: 60 Year
  Sex: Female
  Weight: 86.1834 kg

DRUGS (5)
  1. BYETTA [Suspect]
     Indication: DIABETES MELLITUS NON-INSULIN-DEPENDENT
     Dosage: 5 MCG; BID; SC
     Route: 058
     Dates: start: 20060901, end: 20060101
  2. BYETTA [Suspect]
     Indication: DIABETES MELLITUS NON-INSULIN-DEPENDENT
     Dosage: 5 MCG; BID; SC
     Route: 058
     Dates: start: 20060101
  3. DILANTIN [Suspect]
     Indication: CONVULSION
     Dosage: 200 MG;QD;PO
     Route: 048
     Dates: start: 20050101
  4. INSULIN [Concomitant]
  5. ATENOLOL [Concomitant]

REACTIONS (4)
  - DRUG EFFECT DECREASED [None]
  - HEART RATE INCREASED [None]
  - SOMNOLENCE [None]
  - WEIGHT DECREASED [None]
